FAERS Safety Report 24279964 (Version 2)
Quarter: 2024Q4

REPORT INFORMATION
  Report Type: Spontaneous
  Country: US (occurrence: US)
  Receive Date: 20240904
  Receipt Date: 20241111
  Transmission Date: 20250114
  Serious: No
  Sender: TEVA
  Company Number: US-TEVA-VS-3235636

PATIENT
  Sex: Male

DRUGS (1)
  1. NALOXONE [Suspect]
     Active Substance: NALOXONE
     Indication: Product used for unknown indication
     Dosage: UNKNOWN
     Route: 045
     Dates: start: 2023

REACTIONS (3)
  - Tremor [Unknown]
  - Discoloured vomit [Unknown]
  - Agitation [Unknown]

NARRATIVE: CASE EVENT DATE: 20230101
